FAERS Safety Report 5938993-3 (Version None)
Quarter: 2008Q4

REPORT INFORMATION
  Report Type: 
  Country: None (occurrence: None)
  Receive Date: 20081103
  Receipt Date: 20080317
  Transmission Date: 20090506
  Serious: No
  Sender: FDA-Public Use
  Company Number: US-BAYER-200811277BCC

PATIENT
  Age: 84 Year
  Sex: Male
  Weight: 69 kg

DRUGS (8)
  1. ALEVE (CAPLET) [Suspect]
     Indication: ARTHRALGIA
     Dosage: AS USED: 220 MG  UNIT DOSE: 220 MG
     Route: 048
     Dates: start: 20080317
  2. METOLAZONE [Concomitant]
  3. LASIX [Concomitant]
  4. ISORBIDE [Concomitant]
  5. AMEROL [Concomitant]
  6. LEVOTHYROXINE SODIUM [Concomitant]
  7. CALCIUM [Concomitant]
  8. KLOR-CON [Concomitant]

REACTIONS (1)
  - BLOOD GLUCOSE INCREASED [None]
